FAERS Safety Report 6339723-6 (Version None)
Quarter: 2009Q3

REPORT INFORMATION
  Report Type: 
  Country: None (occurrence: None)
  Receive Date: 20090903
  Receipt Date: 20090821
  Transmission Date: 20100115
  Serious: Yes (Hospitalization)
  Sender: FDA-Public Use
  Company Number: US-ELI_LILLY_AND_COMPANY-US200907000100

PATIENT
  Sex: Male

DRUGS (7)
  1. ZYPREXA [Suspect]
     Indication: HEAD INJURY
     Dosage: 5 MG, 2/D
     Dates: start: 20040101
  2. ZYPREXA [Interacting]
     Dosage: 10 MG, 2/D
     Dates: start: 20090601, end: 20090601
  3. ZYPREXA [Interacting]
     Dosage: 15 MG, UNK
     Dates: start: 20090601
  4. ZYPREXA [Interacting]
     Dosage: 5 MG, EACH MORNING
  5. ZYPREXA [Interacting]
     Dosage: 7.5 MG, EACH EVENING
  6. ZYPREXA [Interacting]
     Dosage: 2.5 MG, AS NEEDED
  7. TRILEPTAL /SCH/ [Concomitant]
     Dosage: 150 MG, UNK

REACTIONS (9)
  - ABDOMINAL DISCOMFORT [None]
  - ABNORMAL BEHAVIOUR [None]
  - AGGRESSION [None]
  - CONFUSIONAL STATE [None]
  - FATIGUE [None]
  - INTENTIONAL DRUG MISUSE [None]
  - OFF LABEL USE [None]
  - SELF-INJURIOUS IDEATION [None]
  - THINKING ABNORMAL [None]
